FAERS Safety Report 8012228-2 (Version None)
Quarter: 2011Q4

REPORT INFORMATION
  Report Type: 
  Country: None (occurrence: None)
  Receive Date: 20111228
  Receipt Date: 20111214
  Transmission Date: 20120403
  Serious: Yes (Other)
  Sender: FDA-Public Use
  Company Number: PL-ROCHE-1022108

PATIENT
  Sex: Female
  Weight: 70 kg

DRUGS (10)
  1. FUROSEMIDE [Concomitant]
     Dates: start: 20060524
  2. MIRCERA [Suspect]
     Route: 058
     Dates: start: 20111010
  3. VITAMIN B COMPLEX CAP [Concomitant]
     Dates: start: 20090615
  4. MIRCERA [Suspect]
     Indication: RENAL FAILURE CHRONIC
     Route: 058
     Dates: start: 20110812
  5. DEXAMETHASONE [Concomitant]
     Dates: start: 20111031
  6. ASPIRIN [Concomitant]
     Dates: start: 20090615
  7. CALCIUM CARBONATE [Concomitant]
     Dates: start: 20060524
  8. SIMAVASTATIN [Concomitant]
     Dates: start: 20090815
  9. MIRCERA [Suspect]
     Route: 058
     Dates: start: 20111107, end: 20111213
  10. OMEPRAZOLE [Concomitant]
     Dates: start: 20070715

REACTIONS (3)
  - PRURITUS [None]
  - RASH [None]
  - HAEMOGLOBIN DECREASED [None]
